FAERS Safety Report 7534638-X (Version None)
Quarter: 2011Q2

REPORT INFORMATION
  Report Type: 
  Country: None (occurrence: None)
  Receive Date: 20110609
  Receipt Date: 20110217
  Transmission Date: 20111010
  Serious: Yes (Hospitalization)
  Sender: FDA-Public Use
  Company Number: PHHY2011DE20658

PATIENT
  Sex: Female

DRUGS (4)
  1. SANDOSTATIN LAR [Suspect]
     Indication: NEUROENDOCRINE TUMOUR
     Dosage: 10 MG EVERY 28 DAYS
     Route: 030
     Dates: start: 20100101
  2. ACTONEL [Concomitant]
     Indication: OSTEOPOROSIS
  3. AMLODIPINE [Concomitant]
     Indication: HYPERTENSION
     Dosage: 5 MG, DAILY
     Route: 048
  4. SANDOSTATIN LAR [Suspect]
     Dosage: 10 MG EVERY 28 DAYS
     Route: 030
     Dates: start: 20110218

REACTIONS (4)
  - DIZZINESS [None]
  - ASTHENIA [None]
  - OSTEOPOROTIC FRACTURE [None]
  - BACK PAIN [None]
